FAERS Safety Report 5086186-7 (Version None)
Quarter: 2006Q3

REPORT INFORMATION
  Report Type: 
  Country: None (occurrence: None)
  Receive Date: 20060818
  Receipt Date: 20060808
  Transmission Date: 20061208
  Serious: Yes (Hospitalization)
  Sender: FDA-Public Use
  Company Number: GXKR2006NL04635

PATIENT
  Age: 64 Year
  Sex: Male

DRUGS (3)
  1. CO-TRIMOXAZOLE (NGX)(SULFAMETHOXAZOLE, TRIMETHOPRIM) TABLET, 960MG [Suspect]
     Indication: PROPHYLAXIS
     Dosage: 960 MG BID ORAL
     Route: 048
     Dates: start: 20060616, end: 20060627
  2. FLUDARA [Concomitant]
  3. FLUCONAZOL PCH CAPSULE [Concomitant]

REACTIONS (2)
  - DRUG HYPERSENSITIVITY [None]
  - DRUG RASH WITH EOSINOPHILIA AND SYSTEMIC SYMPTOMS [None]
